FAERS Safety Report 6197269-2 (Version None)
Quarter: 2009Q2

REPORT INFORMATION
  Report Type: 
  Country: None (occurrence: None)
  Receive Date: 20090521
  Receipt Date: 20090519
  Transmission Date: 20091009
  Serious: No
  Sender: FDA-Public Use
  Company Number: US-B.I. PHARMACEUTICALS,INC./RIDGEFIELD-2009-BP-04719BP

PATIENT
  Age: 69 Year
  Sex: Female

DRUGS (9)
  1. CATAPRES-TTS-1 [Suspect]
     Indication: HYPERTENSION
     Dosage: .3MG
     Route: 061
     Dates: start: 20040101
  2. MINOXIDIL [Concomitant]
     Indication: BLOOD PRESSURE
     Dosage: 5MG
  3. LIPITOR [Concomitant]
     Indication: BLOOD CHOLESTEROL INCREASED
     Dosage: 20MG
  4. ISOSORBIDE [Concomitant]
     Indication: BLOOD PRESSURE
     Dosage: 30MG
  5. NEPHRON FA [Concomitant]
  6. SODIUM POLYSTYRENE SULFATE [Concomitant]
  7. ASPIRIN [Concomitant]
     Dosage: 81MG
  8. XANAX [Concomitant]
  9. LISINOPRIL [Concomitant]
     Dosage: 20MG

REACTIONS (1)
  - BLOOD PRESSURE INADEQUATELY CONTROLLED [None]
